FAERS Safety Report 21791502 (Version 1)
Quarter: 2022Q4

REPORT INFORMATION
  Report Type: Report from Study
  Country: BR (occurrence: BR)
  Receive Date: 20221228
  Receipt Date: 20221228
  Transmission Date: 20230113
  Serious: Yes (Other)
  Sender: FDA-Public Use
  Company Number: BR-CELLTRION INC.-2022BR021632

PATIENT

DRUGS (1)
  1. INFLIXIMAB [Suspect]
     Active Substance: INFLIXIMAB
     Indication: Crohn^s disease
     Dosage: ONCE A MONTH
     Route: 042

REACTIONS (5)
  - Haematochezia [Unknown]
  - Secretion discharge [Unknown]
  - Muscle spasms [Unknown]
  - Treatment delayed [Unknown]
  - Off label use [Unknown]
